FAERS Safety Report 17837629 (Version 2)
Quarter: 2020Q3

REPORT INFORMATION
  Report Type: Other
  Country: US (occurrence: US)
  Receive Date: 20200528
  Receipt Date: 20200701
  Transmission Date: 20201103
  Serious: Yes (Hospitalization, Congenital Anomaly, Other)
  Sender: FDA-Public Use
  Company Number: US-AMAG PHARMACEUTICALS, INC.-AMAG202001865

PATIENT
  Age: 0 Day

DRUGS (1)
  1. MAKENA [Suspect]
     Active Substance: HYDROXYPROGESTERONE CAPROATE
     Indication: FOETAL EXPOSURE DURING PREGNANCY
     Route: 064
     Dates: start: 20200116, end: 20200511

REACTIONS (4)
  - Heart disease congenital [Unknown]
  - Trisomy 21 [Unknown]
  - Premature baby [Unknown]
  - Foetal hypokinesia [Unknown]

NARRATIVE: CASE EVENT DATE: 20200518
